FAERS Safety Report 10564852 (Version 1)
Quarter: 2014Q4

REPORT INFORMATION
  Report Type: Report from Study
  Country: US (occurrence: US)
  Receive Date: 20141105
  Receipt Date: 20141105
  Transmission Date: 20150529
  Serious: No
  Sender: FDA-Public Use
  Company Number: US-AMGEN INC.-USASL2014085343

PATIENT
  Age: 48 Year
  Sex: Male
  Weight: 90.7 kg

DRUGS (1)
  1. ENBREL [Suspect]
     Active Substance: ETANERCEPT
     Indication: RHEUMATOID ARTHRITIS
     Dosage: 50 MG, QWK
     Route: 058
     Dates: start: 20140911

REACTIONS (4)
  - Hyperhidrosis [Recovering/Resolving]
  - Pyrexia [Recovering/Resolving]
  - Rhinorrhoea [Not Recovered/Not Resolved]
  - Nasal congestion [Not Recovered/Not Resolved]

NARRATIVE: CASE EVENT DATE: 20140924
